FAERS Safety Report 5939299-9 (Version None)
Quarter: 2008Q4

REPORT INFORMATION
  Report Type: 
  Country: None (occurrence: None)
  Receive Date: 20081103
  Receipt Date: 20081023
  Transmission Date: 20090506
  Serious: Yes (Hospitalization, Other)
  Sender: FDA-Public Use
  Company Number: US-PFIZER INC-2008089458

PATIENT
  Sex: Female

DRUGS (1)
  1. DEPO-PROVERA SUSPENSION/INJ [Suspect]

REACTIONS (6)
  - ABDOMINAL DISCOMFORT [None]
  - ALOPECIA [None]
  - ANXIETY [None]
  - ARTHRALGIA [None]
  - CHEST PAIN [None]
  - DEPRESSION [None]
